FAERS Safety Report 23257869 (Version 1)
Quarter: 2023Q4

REPORT INFORMATION
  Report Type: Spontaneous
  Country: US (occurrence: US)
  Receive Date: 20231204
  Receipt Date: 20231204
  Transmission Date: 20240110
  Serious: No
  Sender: FDA-Public Use
  Company Number: US-SA-SAC20231127000599

PATIENT
  Sex: Male
  Weight: 48.5 kg

DRUGS (1)
  1. DUPIXENT [Suspect]
     Active Substance: DUPILUMAB
     Indication: Dermatitis atopic
     Dosage: 200 MG, EVERY 2 WEEK
     Route: 058

REACTIONS (3)
  - Rash [Unknown]
  - Dermatitis atopic [Unknown]
  - Therapeutic response decreased [Unknown]
